FAERS Safety Report 5124141-9 (Version None)
Quarter: 2006Q4

REPORT INFORMATION
  Report Type: 
  Country: None (occurrence: None)
  Receive Date: 20061010
  Receipt Date: 20060417
  Transmission Date: 20070319
  Serious: No
  Sender: FDA-Public Use
  Company Number: US-BRISTOL-MYERS SQUIBB COMPANY-13349154

PATIENT
  Age: 85 Year
  Sex: Female
  Weight: 61 kg

DRUGS (5)
  1. AVAPRO [Suspect]
     Indication: HYPERTENSION
     Dates: start: 20041101
  2. AMBIEN [Concomitant]
     Dosage: ^DISCONTINUED ABOUT 2 MONTHS AFTER 05-DEC-2005^
  3. COLACE [Concomitant]
  4. VITAMIN B-12 [Concomitant]
  5. GLUCOSAMINE [Concomitant]

REACTIONS (2)
  - BONE PAIN [None]
  - DIZZINESS [None]
